FAERS Safety Report 6662283-7 (Version None)
Quarter: 2010Q1

REPORT INFORMATION
  Report Type: 
  Country: None (occurrence: None)
  Receive Date: 20100331
  Receipt Date: 20100322
  Transmission Date: 20100710
  Serious: Yes (Hospitalization)
  Sender: FDA-Public Use
  Company Number: BR-GENENTECH-295467

PATIENT
  Sex: Female
  Weight: 53 kg

DRUGS (4)
  1. RITUXIMAB [Suspect]
     Indication: JUVENILE ARTHRITIS
     Dosage: UNK
     Route: 042
     Dates: start: 20090401, end: 20091130
  2. RITUXIMAB [Suspect]
     Indication: VASCULITIS
  3. METICORTEN [Concomitant]
     Indication: DRUG USE FOR UNKNOWN INDICATION
     Dosage: UNK
  4. SULFASALAZINE [Concomitant]
     Indication: DRUG USE FOR UNKNOWN INDICATION

REACTIONS (3)
  - HYPERSENSITIVITY [None]
  - MYOCLONUS [None]
  - PAIN [None]
